FAERS Safety Report 22093745 (Version 3)
Quarter: 2024Q1

REPORT INFORMATION
  Report Type: Spontaneous
  Country: US (occurrence: US)
  Receive Date: 20230314
  Receipt Date: 20240129
  Transmission Date: 20240410
  Serious: Yes (Other)
  Sender: FDA-Public Use
  Company Number: US-BRISTOL-MYERS SQUIBB COMPANY-2023-031522

PATIENT
  Age: 50 Year
  Sex: Male

DRUGS (2)
  1. LENALIDOMIDE [Suspect]
     Active Substance: LENALIDOMIDE
     Indication: Plasma cell myeloma
     Dosage: FREQ: TAKE 1 CAPSULE BY MOUTH DAILY FOR 14 DAYS FOLLOWED BY 7 ?DAY BREAK.
     Route: 048
     Dates: start: 20230214
  2. LENALIDOMIDE [Suspect]
     Active Substance: LENALIDOMIDE
     Dosage: FREQUENCY: TAKE 1 CAPSULE (5MG TOTAL) BY MOUTH EVERY DAY FOLLOWED BY 7-DAY BREAK
     Route: 048

REACTIONS (5)
  - Rash macular [Recovering/Resolving]
  - Rash pruritic [Recovering/Resolving]
  - Palpitations [Recovering/Resolving]
  - Off label use [Unknown]
  - Urticaria [Recovered/Resolved]

NARRATIVE: CASE EVENT DATE: 20230226
